FAERS Safety Report 9621243 (Version 3)
Quarter: 2013Q4

REPORT INFORMATION
  Report Type: Report from Study
  Country: CA (occurrence: CA)
  Receive Date: 20131015
  Receipt Date: 20131121
  Transmission Date: 20140711
  Serious: Yes (Life-Threatening)
  Sender: FDA-Public Use
  Company Number: CA-JNJFOC-20131005954

PATIENT
  Sex: Female
  Weight: 70 kg

DRUGS (8)
  1. REMICADE [Suspect]
     Indication: CROHN^S DISEASE
     Route: 042
     Dates: start: 20110825, end: 20131007
  2. REMICADE [Suspect]
     Indication: CROHN^S DISEASE
     Route: 042
     Dates: start: 201108, end: 20131114
  3. SYNTHROID [Concomitant]
     Route: 065
  4. ESTRACE [Concomitant]
     Route: 048
  5. ASACOL [Concomitant]
     Dosage: UNSPECIFIED DOSE, UNITS MG.
     Route: 065
  6. VIT D [Concomitant]
     Dosage: UNSPECIFIED DOSE, UNITS MG.
     Route: 065
  7. SOLUCORTEF [Concomitant]
     Dosage: UNSPECIFIED DOSE, UNITS MG
     Route: 042
  8. FESO4 [Concomitant]
     Route: 065

REACTIONS (1)
  - Breast cancer [Unknown]
